FAERS Safety Report 21816983 (Version 1)
Quarter: 2023Q1

REPORT INFORMATION
  Report Type: Spontaneous
  Country: US (occurrence: None)
  Receive Date: 20230103
  Receipt Date: 20230103
  Transmission Date: 20230418
  Serious: Yes (Hospitalization)
  Sender: FDA-Public Use
  Company Number: None

PATIENT
  Age: 36 Year
  Sex: Female

DRUGS (1)
  1. ENOXAPARIN [Suspect]
     Active Substance: ENOXAPARIN

REACTIONS (5)
  - Vaginal haemorrhage [None]
  - Rectal haemorrhage [None]
  - Blood urine present [None]
  - Epistaxis [None]
  - Haemoglobin decreased [None]

NARRATIVE: CASE EVENT DATE: 20221216
